FAERS Safety Report 4926410-1 (Version None)
Quarter: 2006Q1

REPORT INFORMATION
  Report Type: 
  Country: None (occurrence: None)
  Receive Date: 20060228
  Receipt Date: 20051116
  Transmission Date: 20060701
  Serious: No
  Sender: FDA-Public Use
  Company Number: US-GLAXOSMITHKLINE-A0582559A

PATIENT
  Age: 20 Year
  Sex: Male
  Weight: 107.7 kg

DRUGS (3)
  1. LAMICTAL [Suspect]
     Indication: BIPOLAR DISORDER
     Dosage: 200MG TWICE PER DAY
     Route: 048
     Dates: end: 20051109
  2. RISPERDAL [Concomitant]
     Indication: BIPOLAR DISORDER
     Dosage: 3MG TWICE PER DAY
     Route: 048
  3. LIPITOR [Concomitant]
     Dosage: 20MG PER DAY
     Route: 048

REACTIONS (4)
  - DIZZINESS [None]
  - HEADACHE [None]
  - RASH [None]
  - STOMACH DISCOMFORT [None]
